FAERS Safety Report 9644013 (Version 2)
Quarter: 2013Q4

REPORT INFORMATION
  Report Type: Report from Study
  Country: US (occurrence: US)
  Receive Date: 20131024
  Receipt Date: 20131104
  Transmission Date: 20140711
  Serious: Yes (Other)
  Sender: FDA-Public Use
  Company Number: US-BAXTER-2013BAX041604

PATIENT
  Age: 74 Year
  Sex: Female
  Weight: 68.55 kg

DRUGS (2)
  1. GAMMAGARD LIQUID [Suspect]
     Indication: IMMUNODEFICIENCY COMMON VARIABLE
     Route: 042
     Dates: start: 20130916, end: 20130916
  2. GAMMAGARD LIQUID [Suspect]
     Route: 042
     Dates: start: 20131007, end: 20131007

REACTIONS (3)
  - White blood cell count decreased [Unknown]
  - Throat irritation [Unknown]
  - Fatigue [Recovered/Resolved]
